FAERS Safety Report 7170627-5 (Version None)
Quarter: 2010Q4

REPORT INFORMATION
  Report Type: 
  Country: None (occurrence: None)
  Receive Date: 20101217
  Receipt Date: 20101214
  Transmission Date: 20110411
  Serious: Yes (Hospitalization)
  Sender: FDA-Public Use
  Company Number: A0899974A

PATIENT
  Age: 72 Year
  Sex: Female
  Weight: 137 kg

DRUGS (9)
  1. PAZOPANIB [Suspect]
     Indication: NON-SMALL CELL LUNG CANCER
     Dosage: 600MG PER DAY
     Route: 048
     Dates: start: 20101203
  2. ERLOTINIB [Suspect]
     Indication: NON-SMALL CELL LUNG CANCER
     Dosage: 150MG PER DAY
     Route: 048
     Dates: start: 20101203
  3. ZOMETA [Concomitant]
     Dosage: 4MG MONTHLY
     Dates: start: 20101203
  4. ALLOPURINOL [Concomitant]
     Indication: GOUT
     Dosage: 300MG PER DAY
     Route: 048
     Dates: start: 20101005
  5. ATIVAN [Concomitant]
     Indication: NAUSEA
     Dosage: 1MG AS REQUIRED
     Route: 048
     Dates: start: 20100707
  6. ACETAMINOPHEN AND HYDROCODONE BITARTRATE [Concomitant]
     Indication: PAIN
     Route: 048
     Dates: start: 20100707
  7. METOPROLOL TARTRATE [Concomitant]
     Indication: HYPERTENSION
     Dosage: 50MG TWICE PER DAY
     Route: 048
     Dates: start: 20101005
  8. PAROXETINE [Concomitant]
     Indication: DEPRESSION
     Dosage: 30MG PER DAY
     Route: 048
     Dates: start: 20101005
  9. PROMETHAZINE [Concomitant]
     Indication: NAUSEA
     Dosage: 25MG AS REQUIRED
     Dates: start: 20100521

REACTIONS (1)
  - RENAL FAILURE ACUTE [None]
